FAERS Safety Report 9240906 (Version 1)
Quarter: 2013Q2

REPORT INFORMATION
  Report Type: Spontaneous
  Country: US (occurrence: None)
  Receive Date: 20130418
  Receipt Date: 20130418
  Transmission Date: 20140414
  Serious: Yes (Other)
  Sender: FDA-Public Use
  Company Number: None

PATIENT
  Age: 24 None
  Sex: Female
  Weight: 70.5 kg

DRUGS (1)
  1. PARAGARD IUD SUPPOSED TO BE HORMONE FREE PARAGARD [Suspect]
     Dates: start: 20070927, end: 20080103

REACTIONS (7)
  - Muscle spasms [None]
  - Haemorrhage [None]
  - Pain [None]
  - Abasia [None]
  - Device dislocation [None]
  - Procedural site reaction [None]
  - Pruritus [None]
